FAERS Safety Report 5860736-2 (Version None)
Quarter: 2008Q3

REPORT INFORMATION
  Report Type: 
  Country: None (occurrence: None)
  Receive Date: 20080827
  Receipt Date: 20080107
  Transmission Date: 20090109
  Serious: Yes (Life-Threatening, Hospitalization)
  Sender: FDA-Public Use
  Company Number: US-ABBOTT-07P-163-0408441-00

PATIENT
  Age: 17 Year
  Sex: Female

DRUGS (3)
  1. NIACIN [Suspect]
     Indication: DRUG ABUSE
     Route: 048
  2. MEDROXYPROGESTERONE ACETATE [Concomitant]
     Indication: DRUG USE FOR UNKNOWN INDICATION
     Route: 048
  3. PAROXETINE HYDROCHOLORIDE [Concomitant]
     Indication: DRUG USE FOR UNKNOWN INDICATION
     Route: 048

REACTIONS (13)
  - CHILLS [None]
  - COAGULOPATHY [None]
  - DEHYDRATION [None]
  - DIZZINESS [None]
  - DRUG TOXICITY [None]
  - FEELING COLD [None]
  - HYPERGLYCAEMIA [None]
  - HYPOGLYCAEMIA [None]
  - METABOLIC ACIDOSIS [None]
  - NAUSEA [None]
  - SOMNOLENCE [None]
  - UNRESPONSIVE TO STIMULI [None]
  - VOMITING [None]
